FAERS Safety Report 7470246 (Version 2)
Quarter: 2013Q3

REPORT INFORMATION
  Report Type: Report from Study
  Country: BR (occurrence: BR)
  Receive Date: 20100713
  Receipt Date: 20130802
  Transmission Date: 20140515
  Serious: Yes (Death, Other)
  Sender: FDA-Public Use
  Company Number: BR-ABBOTT-10P-020-0655614-00

PATIENT
  Sex: Male
  Weight: 63 kg

DRUGS (5)
  1. HUMIRA 40 MG/ 0.8 ML PRE-FILLED SYRINGE [Suspect]
     Indication: ANKYLOSING SPONDYLITIS
     Route: 058
     Dates: end: 2010
  2. VARTS [Concomitant]
     Indication: HYPERTENSION
     Route: 048
  3. AMILORIDE HYDROCHLORIDE, HYDROCHLOROTHIAZIDE (MODURETIC) [Concomitant]
     Indication: DIURETIC THERAPY
     Route: 048
  4. ATENOLOL [Concomitant]
     Indication: HYPERTENSION
     Route: 048
  5. WARFARIN [Concomitant]
     Indication: THROMBOSIS
     Dates: start: 2002

REACTIONS (2)
  - Thrombosis [Fatal]
  - Benign lung neoplasm [Not Recovered/Not Resolved]
